FAERS Safety Report 21587523 (Version 1)
Quarter: 2022Q4

REPORT INFORMATION
  Report Type: Report from Study
  Country: US (occurrence: US)
  Receive Date: 20221114
  Receipt Date: 20221114
  Transmission Date: 20230113
  Serious: No
  Sender: FDA-Public Use
  Company Number: US-ABBVIE-22K-163-4480813-00

PATIENT
  Age: 35 Year
  Sex: Female

DRUGS (2)
  1. HUMIRA [Suspect]
     Active Substance: ADALIMUMAB
     Indication: Hidradenitis
     Dosage: DAY 1/STRENGTH- 80 MILLIGRAM
     Route: 058
     Dates: start: 20211207
  2. HUMIRA [Suspect]
     Active Substance: ADALIMUMAB
     Dosage: DAY 15/STRENGTH- 80 MILLIGRAM
     Route: 058
     Dates: start: 20211222

REACTIONS (6)
  - Hidradenitis [Recovering/Resolving]
  - Pain of skin [Not Recovered/Not Resolved]
  - Loss of personal independence in daily activities [Not Recovered/Not Resolved]
  - Self-consciousness [Not Recovered/Not Resolved]
  - Ill-defined disorder [Not Recovered/Not Resolved]
  - Hidradenitis [Unknown]

NARRATIVE: CASE EVENT DATE: 20220201
